FAERS Safety Report 25362730 (Version 1)
Quarter: 2025Q2

REPORT INFORMATION
  Report Type: Spontaneous
  Country: ES (occurrence: ES)
  Receive Date: 20250527
  Receipt Date: 20250527
  Transmission Date: 20250717
  Serious: Yes (Hospitalization)
  Sender: MYLAN
  Company Number: None

PATIENT
  Age: 66 Year
  Sex: Male
  Weight: 84 kg

DRUGS (5)
  1. TELMISARTAN [Suspect]
     Active Substance: TELMISARTAN
     Indication: Product used for unknown indication
     Dosage: 80 MILLIGRAM, QD (1/24H)
     Dates: start: 20240617
  2. BISOPROLOL [Suspect]
     Active Substance: BISOPROLOL
     Indication: Product used for unknown indication
     Dosage: 10 MILLIGRAM, QD (1/24H)
     Dates: start: 20211110
  3. ARCOXIA [Suspect]
     Active Substance: ETORICOXIB
     Indication: Nasopharyngitis
     Dosage: 30 MILLIGRAM, Q8H (ONE EVERY 8 HOURS) (28 TABLETS)
     Dates: start: 20241117, end: 20241120
  4. TRAZODONE HYDROCHLORIDE [Suspect]
     Active Substance: TRAZODONE HYDROCHLORIDE
     Indication: Product used for unknown indication
     Dosage: 100 MILLIGRAM, QD (1/24H)
     Dates: start: 20201119
  5. Terazosina [Concomitant]
     Indication: Product used for unknown indication
     Dosage: 5 MILLIGRAM, QD (1/24H)
     Dates: start: 20190617

REACTIONS (3)
  - Malaise [Recovered/Resolved]
  - Melaena [Recovered/Resolved]
  - Abdominal pain [Recovered/Resolved]

NARRATIVE: CASE EVENT DATE: 20241117
